FAERS Safety Report 7986396-2 (Version None)
Quarter: 2011Q4

REPORT INFORMATION
  Report Type: 
  Country: None (occurrence: None)
  Receive Date: 20111216
  Receipt Date: 20110711
  Transmission Date: 20120403
  Serious: No
  Sender: FDA-Public Use
  Company Number: US-GLAXOSMITHKLINE-A0936310A

PATIENT
  Age: 56 Year
  Sex: Female

DRUGS (8)
  1. LOVAZA [Concomitant]
  2. ALTACE [Concomitant]
  3. LANOXIN [Concomitant]
  4. COREG CR [Suspect]
     Indication: CONGESTIVE CARDIOMYOPATHY
     Dosage: 20MG PER DAY
     Route: 048
     Dates: start: 20100101
  5. FUROSEMIDE [Concomitant]
  6. COENZYME Q10 [Concomitant]
  7. BLACK CURRANT SEED OIL [Concomitant]
  8. ZYRTEC [Concomitant]

REACTIONS (3)
  - NAUSEA [None]
  - MIGRAINE [None]
  - LETHARGY [None]
